FAERS Safety Report 5206984-6 (Version None)
Quarter: 2007Q1

REPORT INFORMATION
  Report Type: 
  Country: None (occurrence: None)
  Receive Date: 20070108
  Receipt Date: 20070108
  Transmission Date: 20070707
  Serious: Yes (Other)
  Sender: FDA-Public Use
  Company Number: None

PATIENT
  Age: 35 Year
  Sex: Male
  Weight: 70 kg

DRUGS (11)
  1. KETEK [Suspect]
     Indication: SELF-MEDICATION
     Dosage: 400 MG TOOK ONE DOSE PO
     Route: 048
     Dates: start: 20061209, end: 20061209
  2. LISINOPRIL [Concomitant]
  3. HYDROCHLOROTHIAZIDE [Concomitant]
  4. CARVEDILOL [Concomitant]
  5. POTASSIUM CHLORIDE [Concomitant]
  6. RIFAMPIN [Concomitant]
  7. ATHEMBUTOL [Concomitant]
  8. INH [Concomitant]
  9. PYRAZINAMIDE [Concomitant]
  10. SIMVASTATIN [Concomitant]
  11. B6 [Concomitant]

REACTIONS (3)
  - HEPATITIS TOXIC [None]
  - INJURY [None]
  - SELF-MEDICATION [None]
